FAERS Safety Report 23948684 (Version 1)
Quarter: 2024Q2

REPORT INFORMATION
  Report Type: Report from Study
  Country: EG (occurrence: EG)
  Receive Date: 20240607
  Receipt Date: 20240607
  Transmission Date: 20240716
  Serious: Yes (Other)
  Sender: FDA-Public Use
  Company Number: EG-SANDOZ-SDZ2024EG053159

PATIENT
  Sex: Female

DRUGS (1)
  1. OMNITROPE [Suspect]
     Active Substance: SOMATROPIN
     Indication: Growth hormone deficiency
     Dosage: 1.5MG/DAY
     Route: 058

REACTIONS (10)
  - Bone disorder [Unknown]
  - Arthralgia [Unknown]
  - Myalgia [Unknown]
  - Product availability issue [Unknown]
  - Incorrect dose administered by device [Unknown]
  - Multiple use of single-use product [Unknown]
  - Therapy change [Unknown]
  - Device issue [Unknown]
  - Bile acids abnormal [Unknown]
  - Expired device used [Unknown]
